FAERS Safety Report 8814323 (Version 1)
Quarter: 2012Q4

REPORT INFORMATION
  Report Type: 
  Country: US (occurrence: US)
  Receive Date: 20120928
  Receipt Date: 20120928
  Transmission Date: 20130627
  Serious: Yes (Hospitalization)
  Sender: FDA-Public Use
  Company Number: US-BRISTOL-MYERS SQUIBB COMPANY-16969842

PATIENT
  Age: 73 Year
  Sex: Male
  Weight: 82 kg

DRUGS (4)
  1. METFORMIN HCL [Suspect]
  2. GLIPIZIDE [Concomitant]
  3. ACTOS [Concomitant]
  4. INSULIN [Concomitant]

REACTIONS (1)
  - Cerebrovascular accident [Unknown]
